FAERS Safety Report 4335066-0 (Version None)
Quarter: 2004Q2

REPORT INFORMATION
  Report Type: 
  Country: None (occurrence: None)
  Receive Date: 20040408
  Receipt Date: 20040127
  Transmission Date: 20050107
  Serious: No
  Sender: FDA-Public Use
  Company Number: US-GLAXOSMITHKLINE-A0495266A

PATIENT
  Age: 62 Year
  Sex: Female

DRUGS (12)
  1. FLOVENT [Suspect]
     Indication: ILL-DEFINED DISORDER
     Dosage: 2PUFF FOUR TIMES PER DAY
     Route: 055
     Dates: start: 19970101
  2. PREDNISONE [Concomitant]
  3. COMBIVENT [Concomitant]
  4. CALAN [Concomitant]
  5. ZESTRIL [Concomitant]
  6. GLUCOPHAGE [Concomitant]
  7. EVISTA [Concomitant]
  8. PRAVACHOL [Concomitant]
  9. FLEXERIL [Concomitant]
  10. PROZAC [Concomitant]
  11. TYLENOL W/ CODEINE [Concomitant]
  12. KETOPROFEN [Concomitant]

REACTIONS (2)
  - TEETH BRITTLE [None]
  - TOOTH LOSS [None]
